FAERS Safety Report 9294042 (Version 1)
Quarter: 2013Q1

REPORT INFORMATION
  Report Type: Spontaneous
  Country: US (occurrence: None)
  Receive Date: 20121227
  Receipt Date: 20121227
  Transmission Date: 20140127
  Serious: Yes (Other)
  Sender: FDA-Public Use
  Company Number: PHEH2011US012074

PATIENT
  Age: 85 Year
  Sex: Male
  Weight: 70 kg

DRUGS (5)
  1. EXJADE [Suspect]
     Indication: IRON OVERLOAD
     Route: 048
     Dates: start: 20110921, end: 20111214
  2. DIOVAN (VALSARTAN) [Concomitant]
  3. FOLATE SODIUM (FOLATE SODIUM) [Concomitant]
  4. PREDNISONE (PREDNISONE) [Concomitant]
  5. KCL (POTASSIUM CHLORIDE) [Concomitant]

REACTIONS (1)
  - Liver function test abnormal [None]
